FAERS Safety Report 8329068-7 (Version None)
Quarter: 2012Q2

REPORT INFORMATION
  Report Type: 
  Country: None (occurrence: None)
  Receive Date: 20120502
  Receipt Date: 20120427
  Transmission Date: 20120825
  Serious: No
  Sender: FDA-Public Use
  Company Number: US-PFIZER INC-2012105404

PATIENT
  Age: 40 Year
  Sex: Female

DRUGS (2)
  1. PRISTIQ [Suspect]
     Dosage: 50 MG, DAILY
     Dates: start: 20110101
  2. PRISTIQ [Suspect]
     Dosage: 50 MG, ALTERNATE DAY

REACTIONS (2)
  - FEELING ABNORMAL [None]
  - NAUSEA [None]
